FAERS Safety Report 13792524 (Version 1)
Quarter: 2017Q3

REPORT INFORMATION
  Report Type: Spontaneous
  Country: CH (occurrence: CH)
  Receive Date: 20170725
  Receipt Date: 20170725
  Transmission Date: 20171127
  Serious: Yes (Hospitalization)
  Sender: FDA-Public Use
  Company Number: CH-ASTRAZENECA-2017SE73811

PATIENT
  Age: 27428 Day
  Sex: Male
  Weight: 86.5 kg

DRUGS (2)
  1. SEROQUEL [Suspect]
     Active Substance: QUETIAPINE FUMARATE
     Indication: POSTOPERATIVE DELIRIUM
     Route: 048
     Dates: start: 20170516, end: 20170615
  2. HALDOL [Suspect]
     Active Substance: HALOPERIDOL
     Indication: POSTOPERATIVE DELIRIUM
     Route: 048
     Dates: start: 20170516, end: 20170524

REACTIONS (1)
  - Liver disorder [Not Recovered/Not Resolved]

NARRATIVE: CASE EVENT DATE: 20170615
